FAERS Safety Report 4843847-X (Version None)
Quarter: 2005Q4

REPORT INFORMATION
  Report Type: 
  Country: None (occurrence: None)
  Receive Date: 20051130
  Receipt Date: 20051130
  Transmission Date: 20060501
  Serious: Yes (Hospitalization, Other)
  Sender: FDA-Public Use
  Company Number: None

PATIENT
  Sex: Male
  Weight: 82.27 kg

DRUGS (12)
  1. DEPAKOTE [Suspect]
     Indication: MOOD ALTERED
     Dosage: 1,000MG PO BID
     Route: 048
     Dates: start: 20050401, end: 20050722
  2. VASOTEC [Concomitant]
  3. GLUCOTROL XL [Concomitant]
  4. ASPIRIN [Concomitant]
  5. LITHIUM CARBONATE [Concomitant]
  6. DOCUSATE [Concomitant]
  7. SEROQUEL [Concomitant]
  8. NIACIN CR [Concomitant]
  9. CARBAMAZEPINE [Concomitant]
  10. TOPAMAX [Concomitant]
  11. LORAZEPAM [Concomitant]
  12. FLUPHENAZINE [Concomitant]

REACTIONS (4)
  - BALANCE DISORDER [None]
  - CONFUSIONAL STATE [None]
  - FALL [None]
  - WHEELCHAIR USER [None]
